FAERS Safety Report 4832766-0 (Version None)
Quarter: 2005Q4

REPORT INFORMATION
  Report Type: 
  Country: None (occurrence: None)
  Receive Date: 20051121
  Receipt Date: 20051109
  Transmission Date: 20060501
  Serious: Yes (Other)
  Sender: FDA-Public Use
  Company Number: 2005AP05844

PATIENT
  Age: 76 Year
  Sex: Female

DRUGS (4)
  1. TAMOXIFEN [Suspect]
     Indication: BREAST CANCER FEMALE
     Route: 048
     Dates: start: 20000315, end: 20050315
  2. PROBITOR [Suspect]
     Indication: PEPTIC ULCER
     Route: 048
     Dates: start: 20040715, end: 20050115
  3. ZOLOFT [Concomitant]
     Indication: ANXIETY DISORDER
     Dosage: LONG TERM MEDICATION.
     Route: 048
  4. XANAX [Concomitant]
     Indication: ANXIETY DISORDER
     Dosage: LONG TERM MEDICATION
     Route: 048

REACTIONS (2)
  - MALAISE [None]
  - NEPHRITIS INTERSTITIAL [None]
